FAERS Safety Report 11072150 (Version 1)
Quarter: 2015Q2

REPORT INFORMATION
  Report Type: Spontaneous
  Country: DE (occurrence: DE)
  Receive Date: 20150428
  Receipt Date: 20150428
  Transmission Date: 20150821
  Serious: Yes (Hospitalization)
  Sender: FDA-Public Use
  Company Number: DE-ELI_LILLY_AND_COMPANY-DE201504005772

PATIENT
  Age: 32 Year
  Sex: Male

DRUGS (12)
  1. ZYPREXA [Suspect]
     Active Substance: OLANZAPINE
     Dosage: 10 MG, QD
     Route: 048
     Dates: start: 20100226, end: 20100228
  2. RISPERDAL [Concomitant]
     Active Substance: RISPERIDONE
     Dosage: 2 MG, UNKNOWN
     Route: 048
     Dates: start: 20100225
  3. ZYPREXA [Suspect]
     Active Substance: OLANZAPINE
     Dosage: 20 MG, UNK
     Route: 048
     Dates: start: 20100213, end: 20100224
  4. ZYPREXA [Suspect]
     Active Substance: OLANZAPINE
     Dosage: 15 MG, QD
     Route: 048
     Dates: start: 20100225, end: 20100225
  5. RISPERDAL [Concomitant]
     Active Substance: RISPERIDONE
     Dosage: 6 DF, UNKNOWN
     Route: 048
     Dates: start: 20100216, end: 20100217
  6. SINUPRET                           /00578801/ [Concomitant]
     Dosage: 3 DF, UNKNOWN
     Route: 048
     Dates: start: 20100218, end: 20100223
  7. RISPERDAL [Concomitant]
     Active Substance: RISPERIDONE
     Dosage: 4 MG, UNKNOWN
     Route: 048
     Dates: start: 20100226, end: 20100301
  8. ZYPREXA [Suspect]
     Active Substance: OLANZAPINE
     Dosage: 15 MG, QD
     Route: 048
     Dates: start: 20100129, end: 20100209
  9. ZYPREXA [Suspect]
     Active Substance: OLANZAPINE
     Dosage: 5 MG, QD
     Route: 048
     Dates: start: 20100301, end: 20100302
  10. RISPERDAL [Concomitant]
     Active Substance: RISPERIDONE
     Dosage: 6 MG, UNKNOWN
     Route: 048
     Dates: start: 20100303
  11. ZYPREXA [Suspect]
     Active Substance: OLANZAPINE
     Indication: PRODUCT USED FOR UNKNOWN INDICATION
     Dosage: 10 MG, QD
     Route: 048
     Dates: start: 20100127, end: 20100128
  12. RISPERDAL [Concomitant]
     Active Substance: RISPERIDONE
     Dosage: 5 MG, UNKNOWN
     Route: 048
     Dates: start: 20100302, end: 20100303

REACTIONS (4)
  - Aspartate aminotransferase increased [Recovered/Resolved]
  - Blood sodium increased [Recovered/Resolved]
  - Gamma-glutamyltransferase increased [Recovered/Resolved]
  - Alanine aminotransferase increased [Recovered/Resolved]

NARRATIVE: CASE EVENT DATE: 20100216
